FAERS Safety Report 23598001 (Version 2)
Quarter: 2024Q1

REPORT INFORMATION
  Report Type: Spontaneous
  Country: US (occurrence: US)
  Receive Date: 20240305
  Receipt Date: 20240321
  Transmission Date: 20240410
  Serious: No
  Sender: FDA-Public Use
  Company Number: US-BEH-2024168952

PATIENT
  Sex: Female

DRUGS (26)
  1. HIZENTRA [Suspect]
     Active Substance: HUMAN IMMUNOGLOBULIN G
     Indication: Immunodeficiency common variable
     Dosage: 17 GRAM, QW
     Route: 058
  2. HIZENTRA [Suspect]
     Active Substance: HUMAN IMMUNOGLOBULIN G
     Dosage: 17 GRAM, QW
     Route: 058
  3. DOXYCYCLINE [Concomitant]
     Active Substance: DOXYCYCLINE
  4. LEVOTHYROXINE [Concomitant]
     Active Substance: LEVOTHYROXINE\LEVOTHYROXINE SODIUM
  5. METFORMIN [Concomitant]
     Active Substance: METFORMIN HYDROCHLORIDE
  6. ALBUTEROL SULFATE [Concomitant]
     Active Substance: ALBUTEROL SULFATE
  7. ATORVASTATIN [Concomitant]
     Active Substance: ATORVASTATIN
  8. AZELASTIN HYSAN [Concomitant]
  9. BACLOFEN [Concomitant]
     Active Substance: BACLOFEN
  10. CELECOXIB [Concomitant]
     Active Substance: CELECOXIB
  11. DIVALPROEX SODIUM [Concomitant]
     Active Substance: DIVALPROEX SODIUM
  12. FLOVENT HFA [Concomitant]
     Active Substance: FLUTICASONE PROPIONATE
  13. FLUTICASONE [Concomitant]
     Active Substance: FLUTICASONE
  14. FOLIC ACID [Concomitant]
     Active Substance: FOLIC ACID
  15. GABAPENTIN [Concomitant]
     Active Substance: GABAPENTIN
  16. LITHIUM CARBONATE [Concomitant]
     Active Substance: LITHIUM CARBONATE
  17. METHOTREXATE [Concomitant]
     Active Substance: METHOTREXATE
  18. MONTELUKAST [Concomitant]
     Active Substance: MONTELUKAST SODIUM
  19. OMEPRAZOLE [Concomitant]
     Active Substance: OMEPRAZOLE
  20. PRIMIDONE [Concomitant]
     Active Substance: PRIMIDONE
  21. PROPRANOLOL [Concomitant]
     Active Substance: PROPRANOLOL HYDROCHLORIDE
  22. SERTRALINE HYDROCHLORIDE [Concomitant]
     Active Substance: SERTRALINE HYDROCHLORIDE
  23. UBRELVY [Concomitant]
     Active Substance: UBROGEPANT
  24. VALACYCLOVIR [Concomitant]
     Active Substance: VALACYCLOVIR HYDROCHLORIDE
  25. CYANOCOBALAMIN [Concomitant]
     Active Substance: CYANOCOBALAMIN
  26. VITAMIN D3 [Concomitant]
     Active Substance: CHOLECALCIFEROL

REACTIONS (3)
  - Infusion site discharge [Not Recovered/Not Resolved]
  - Erythema [Not Recovered/Not Resolved]
  - Extravasation [Not Recovered/Not Resolved]
